FAERS Safety Report 17140266 (Version 1)
Quarter: 2019Q4

REPORT INFORMATION
  Report Type: Spontaneous
  Country: DE (occurrence: DE)
  Receive Date: 20191211
  Receipt Date: 20191211
  Transmission Date: 20200122
  Serious: Yes (Hospitalization)
  Sender: FDA-Public Use
  Company Number: NVSC2019DE058169

PATIENT
  Age: 45 Year
  Sex: Male

DRUGS (6)
  1. HYPERICUM PERFORATUM [Interacting]
     Active Substance: HYPERICUM PERFORATUM WHOLE
     Dosage: 900 MG (FOR AT LEAST THREE MONTHS PRIOR TO HOSPITALISATION)
     Route: 065
  2. ALPRAZOLAM. [Suspect]
     Active Substance: ALPRAZOLAM
     Indication: PRODUCT USED FOR UNKNOWN INDICATION
     Dosage: UNK (STARTED AFTER AN EMERGENCY LANDING OF HIS AIR PLANE AFTER IT CAUGHT FIRE [STARTING DOSE NOT STA
     Route: 048
  3. HYPERICUM PERFORATUM [Interacting]
     Active Substance: HYPERICUM PERFORATUM WHOLE
     Indication: DRUG WITHDRAWAL SYNDROME
     Dosage: 425 MG, TID (THREE TIMES A DAY)
     Route: 065
  4. CLONAZEPAM. [Interacting]
     Active Substance: CLONAZEPAM
     Indication: DRUG WITHDRAWAL SYNDROME
     Dosage: 1 MG, QD
     Route: 048
  5. ALPRAZOLAM. [Suspect]
     Active Substance: ALPRAZOLAM
     Dosage: 4 MG, QD (SINCE LAST NINE MONTHS)
     Route: 048
  6. CLONAZEPAM. [Interacting]
     Active Substance: CLONAZEPAM
     Dosage: 0.4 MG, QD
     Route: 048

REACTIONS (8)
  - Tachycardia [Recovered/Resolved]
  - Off label use [Recovered/Resolved]
  - Withdrawal syndrome [Recovered/Resolved]
  - Benzodiazepine drug level decreased [Recovered/Resolved]
  - Drug interaction [Recovered/Resolved]
  - Drug use disorder [Recovered/Resolved]
  - Drug abuse [Recovered/Resolved]
  - Tremor [Recovered/Resolved]
